FAERS Safety Report 4317468-1 (Version None)
Quarter: 2004Q1

REPORT INFORMATION
  Report Type: 
  Country: None (occurrence: None)
  Receive Date: 20040312
  Receipt Date: 20040303
  Transmission Date: 20041129
  Serious: Yes (Death, Hospitalization)
  Sender: FDA-Public Use
  Company Number: US-JNJFOC-20031202782

PATIENT
  Age: 70 Year
  Sex: Male
  Weight: 83.9154 kg

DRUGS (23)
  1. NATRECOR [Suspect]
     Indication: CARDIAC FAILURE CONGESTIVE
     Dosage: 0.01 UG/KG, 2 IN 1 MONTH, INTRAVENOUS BOLUS; 0.02 UG/KG/MIN, 2 IN 1 MONTH, INTRAVENOUS BOLUS
     Route: 040
     Dates: start: 20030711, end: 20030904
  2. NATRECOR [Suspect]
     Indication: CONDITION AGGRAVATED
     Dosage: 0.01 UG/KG, 2 IN 1 MONTH, INTRAVENOUS BOLUS; 0.02 UG/KG/MIN, 2 IN 1 MONTH, INTRAVENOUS BOLUS
     Route: 040
     Dates: start: 20030711, end: 20030904
  3. NATRECOR [Suspect]
     Indication: CARDIAC FAILURE CONGESTIVE
     Dosage: 0.01 UG/KG, 2 IN 1 MONTH, INTRAVENOUS BOLUS; 0.02 UG/KG/MIN, 2 IN 1 MONTH, INTRAVENOUS BOLUS
     Route: 040
     Dates: start: 20030711, end: 20030904
  4. NATRECOR [Suspect]
     Indication: CONDITION AGGRAVATED
     Dosage: 0.01 UG/KG, 2 IN 1 MONTH, INTRAVENOUS BOLUS; 0.02 UG/KG/MIN, 2 IN 1 MONTH, INTRAVENOUS BOLUS
     Route: 040
     Dates: start: 20030711, end: 20030904
  5. K-DUR 10 [Concomitant]
  6. TOPROL (METOPROLOL SUCCINATE) [Concomitant]
  7. ASPIRIN [Concomitant]
  8. PROTONIX [Concomitant]
  9. ZAROXOLYN [Concomitant]
  10. AMBIEN [Concomitant]
  11. LIPITOR [Concomitant]
  12. ACTONEL [Concomitant]
  13. ALLOPURINOL [Concomitant]
  14. LASIX [Concomitant]
  15. CENTRUM (CENTRUM) [Concomitant]
  16. HUMULIN (NOVOLIN 20/80) [Concomitant]
  17. FERROUS SULFATE TAB [Concomitant]
  18. KLOR-CON [Concomitant]
  19. COREG [Concomitant]
  20. THEOPHYLLINE [Concomitant]
  21. ZOCOR [Concomitant]
  22. BUMEX [Concomitant]
  23. INSULIN [Concomitant]

REACTIONS (19)
  - ALANINE AMINOTRANSFERASE INCREASED [None]
  - ASPARTATE AMINOTRANSFERASE INCREASED [None]
  - BLOOD ALKALINE PHOSPHATASE INCREASED [None]
  - BLOOD CHLORIDE DECREASED [None]
  - BLOOD GLUCOSE INCREASED [None]
  - BLOOD SODIUM DECREASED [None]
  - BLOOD UREA INCREASED [None]
  - CARDIAC FAILURE [None]
  - CARDIAC FAILURE CONGESTIVE [None]
  - DISEASE PROGRESSION [None]
  - DRY SKIN [None]
  - ELECTROCARDIOGRAM ABNORMAL [None]
  - ERYTHEMA [None]
  - FURUNCLE [None]
  - MYOCARDIAL INFARCTION [None]
  - PRURITUS [None]
  - RASH GENERALISED [None]
  - SKIN WARM [None]
  - VENTRICULAR EXTRASYSTOLES [None]
